FAERS Safety Report 12438286 (Version 1)
Quarter: 2016Q2

REPORT INFORMATION
  Report Type: Spontaneous
  Country: US (occurrence: US)
  Receive Date: 20160606
  Receipt Date: 20160606
  Transmission Date: 20160815
  Serious: Yes (Hospitalization, Other)
  Sender: FDA-Public Use
  Company Number: US-PFIZER INC-2016283406

PATIENT
  Sex: Male
  Weight: 66 kg

DRUGS (2)
  1. RAPAMUNE [Suspect]
     Active Substance: SIROLIMUS
     Indication: RENAL TRANSPLANT
     Dosage: 4 DF, DAILY
     Route: 048
  2. INSULIN [Suspect]
     Active Substance: INSULIN NOS

REACTIONS (2)
  - Blood glucose decreased [Unknown]
  - Diabetes mellitus [Unknown]
